FAERS Safety Report 13512241 (Version 1)
Quarter: 2017Q2

REPORT INFORMATION
  Report Type: Spontaneous
  Country: US (occurrence: US)
  Receive Date: 20170504
  Receipt Date: 20170504
  Transmission Date: 20170830
  Serious: No
  Sender: FDA-Public Use
  Company Number: US-INCYTE CORPORATION-2017IN003237

PATIENT
  Sex: Female

DRUGS (1)
  1. JAKAFI [Suspect]
     Active Substance: RUXOLITINIB
     Dosage: 10 MG, BID
     Route: 048
     Dates: start: 20161107

REACTIONS (5)
  - Renal disorder [Unknown]
  - Bladder disorder [Unknown]
  - Arthropathy [Unknown]
  - Gait disturbance [Unknown]
  - Micturition urgency [Unknown]
